FAERS Safety Report 4838538-5 (Version None)
Quarter: 2005Q4

REPORT INFORMATION
  Report Type: 
  Country: None (occurrence: None)
  Receive Date: 20051123
  Receipt Date: 20051115
  Transmission Date: 20060501
  Serious: Yes (Life-Threatening, Hospitalization)
  Sender: FDA-Public Use
  Company Number: 2005-04543

PATIENT
  Age: 76 Year
  Sex: Male

DRUGS (2)
  1. ETOPOSIDE [Suspect]
     Indication: LUNG NEOPLASM MALIGNANT
     Dosage: INTRAVENOUS
     Route: 042
  2. CISPLATIN [Suspect]
     Dosage: INTRAVENOUS
     Route: 042

REACTIONS (3)
  - NECROTISING COLITIS [None]
  - NEUTROPENIC COLITIS [None]
  - POST PROCEDURAL COMPLICATION [None]
